FAERS Safety Report 12393719 (Version 3)
Quarter: 2021Q4

REPORT INFORMATION
  Report Type: Report from Study
  Country: FR (occurrence: FR)
  Receive Date: 20160523
  Receipt Date: 20211112
  Transmission Date: 20220303
  Serious: Yes (Hospitalization)
  Sender: FDA-Public Use
  Company Number: FR-BAXTER-2016BAX026163

PATIENT
  Age: 51 Year
  Sex: Female
  Weight: 54 kg

DRUGS (8)
  1. CYCLOPHOSPHAMIDE [Suspect]
     Active Substance: CYCLOPHOSPHAMIDE
     Indication: Osteosarcoma
     Dosage: CUMULATIVE DOSE OF 1400 MG SINCE 1ST ADMINISTRATION
     Route: 048
     Dates: start: 20151005
  2. CYCLOPHOSPHAMIDE [Suspect]
     Active Substance: CYCLOPHOSPHAMIDE
     Dosage: REGIMEN#1
     Route: 048
     Dates: start: 20151029
  3. SIROLIMUS [Suspect]
     Active Substance: SIROLIMUS
     Indication: Osteosarcoma
     Dosage: CUMULATIVE DOSE 168 MG
     Route: 065
     Dates: start: 20151005
  4. SIROLIMUS [Suspect]
     Active Substance: SIROLIMUS
     Route: 065
     Dates: start: 20151029
  5. METHOTREXATE SODIUM [Suspect]
     Active Substance: METHOTREXATE SODIUM
     Indication: Osteosarcoma
     Dosage: CUMULATIVE DOSE OF 40 MG SINCE 1ST ADMINISTRATION
     Route: 048
     Dates: start: 20151005
  6. METHOTREXATE SODIUM [Suspect]
     Active Substance: METHOTREXATE SODIUM
     Route: 048
     Dates: start: 20151025
  7. ZOLEDRONIC ACID [Suspect]
     Active Substance: ZOLEDRONIC ACID
     Indication: Osteosarcoma
     Dosage: REGIMEN#1?CUMULATIVE DOSE OF 4 MG SINCE 1ST ADMINISTRATION
     Route: 065
     Dates: start: 20151006
  8. PAROXETINE HYDROCHLORIDE [Concomitant]
     Active Substance: PAROXETINE HYDROCHLORIDE
     Indication: Depression
     Route: 048
     Dates: start: 20151023

REACTIONS (1)
  - Musculoskeletal chest pain [Recovered/Resolved]

NARRATIVE: CASE EVENT DATE: 20151029
